FAERS Safety Report 6679631-4 (Version None)
Quarter: 2010Q2

REPORT INFORMATION
  Report Type: 
  Country: None (occurrence: None)
  Receive Date: 20100409
  Receipt Date: 20100330
  Transmission Date: 20101027
  Serious: Yes (Life-Threatening, Hospitalization)
  Sender: FDA-Public Use
  Company Number: 232482J10USA

PATIENT
  Age: 53 Year
  Sex: Female

DRUGS (3)
  1. REBIF [Suspect]
     Indication: MULTIPLE SCLEROSIS
     Dosage: 22 MG, 3 IN 1 WK, SUBCUTANEOUS
     Route: 058
     Dates: start: 20090630, end: 20100218
  2. REBIF [Suspect]
     Indication: MULTIPLE SCLEROSIS
     Dosage: 22 MG, 3 IN 1 WK, SUBCUTANEOUS
     Route: 058
     Dates: start: 20100323
  3. VICODIN [Concomitant]

REACTIONS (5)
  - DISORIENTATION [None]
  - GAIT DISTURBANCE [None]
  - H1N1 INFLUENZA [None]
  - LOSS OF CONSCIOUSNESS [None]
  - MIGRAINE [None]
